FAERS Safety Report 8894949 (Version 2)
Quarter: 2013Q1

REPORT INFORMATION
  Report Type: Report from Study
  Country: US (occurrence: US)
  Receive Date: 20121108
  Receipt Date: 20130326
  Transmission Date: 20140127
  Serious: Yes (Death)
  Sender: FDA-Public Use
  Company Number: US-MILLENNIUM PHARMACEUTICALS, INC.-2012-07890

PATIENT
  Sex: 0

DRUGS (10)
  1. VELCADE [Suspect]
     Indication: NON-HODGKIN^S LYMPHOMA
     Dosage: 1.0 MG/M2, CYCLIC
     Route: 042
  2. ETOPOSIDE [Suspect]
     Indication: NON-HODGKIN^S LYMPHOMA
     Dosage: 100 MG/M2, CYCLIC
  3. MELPHALAN [Suspect]
     Indication: NON-HODGKIN^S LYMPHOMA
     Dosage: 100 MG/M2, CYCLIC
  4. RITUXIMAB [Suspect]
     Indication: NON-HODGKIN^S LYMPHOMA
     Dosage: 375 MG/M2, CYCLIC
  5. RITUXIMAB [Suspect]
     Dosage: 1000 UNK, UNK
  6. CARMUSTINE [Suspect]
     Indication: NON-HODGKIN^S LYMPHOMA
     Dosage: 300 MG/M2, CYCLIC
  7. CYTARABINE [Suspect]
     Indication: NON-HODGKIN^S LYMPHOMA
     Dosage: 100 MG/M2, CYCLIC
  8. FLAGYL /00012501/ [Concomitant]
     Indication: PROPHYLAXIS
  9. TACROLIMUS [Concomitant]
     Indication: PROPHYLAXIS AGAINST GRAFT VERSUS HOST DISEASE
  10. METHOTREXATE [Concomitant]
     Indication: PROPHYLAXIS AGAINST GRAFT VERSUS HOST DISEASE

REACTIONS (1)
  - Acute graft versus host disease [Fatal]
